FAERS Safety Report 7492794-6 (Version None)
Quarter: 2011Q2

REPORT INFORMATION
  Report Type: 
  Country: None (occurrence: None)
  Receive Date: 20110519
  Receipt Date: 20110516
  Transmission Date: 20111010
  Serious: No
  Sender: FDA-Public Use
  Company Number: US-BAYER-2011-041994

PATIENT
  Sex: Male

DRUGS (1)
  1. AVELOX [Suspect]
     Dosage: UNK
     Dates: start: 20110101, end: 20110501

REACTIONS (4)
  - HYPOAESTHESIA [None]
  - HYPOGEUSIA [None]
  - HEADACHE [None]
  - PARAESTHESIA [None]
